FAERS Safety Report 8619361 (Version 2)
Quarter: 2012Q4

REPORT INFORMATION
  Report Type: 
  Country: US (occurrence: US)
  Receive Date: 20120618
  Receipt Date: 20121226
  Transmission Date: 20130627
  Serious: Yes (Congenital Anomaly, Other)
  Sender: FDA-Public Use
  Company Number: US-PFIZER INC-2012142168

PATIENT
  Sex: Male

DRUGS (6)
  1. ZOLOFT [Suspect]
     Indication: ANXIETY
     Dosage: UNK
     Route: 064
     Dates: start: 2005
  2. ZOLOFT [Suspect]
     Indication: DEPRESSION
  3. ZOLOFT [Suspect]
     Indication: MOOD DISORDER NOS
  4. PAXIL [Concomitant]
     Dosage: UNK
     Route: 064
  5. CELEXA [Concomitant]
     Dosage: UNK
     Route: 064
  6. LEXAPRO [Concomitant]
     Dosage: UNK
     Route: 064

REACTIONS (10)
  - Maternal exposure during pregnancy [Unknown]
  - Multiple cardiac defects [Unknown]
  - Coarctation of the aorta [Unknown]
  - Congenital aortic valve stenosis [Unknown]
  - Aortic valve incompetence [Unknown]
  - Aortic valve atresia [Unknown]
  - Ventricular septal defect [Unknown]
  - Neonatal respiratory failure [Unknown]
  - Atrial septal defect [Unknown]
  - Respiratory disorder [Unknown]
